FAERS Safety Report 6736762-8 (Version None)
Quarter: 2010Q2

REPORT INFORMATION
  Report Type: 
  Country: None (occurrence: None)
  Receive Date: 20100521
  Receipt Date: 20100512
  Transmission Date: 20101027
  Serious: Yes (Other)
  Sender: FDA-Public Use
  Company Number: MX-PFIZER INC-2010059965

PATIENT
  Age: 48 Year
  Sex: Female
  Weight: 62 kg

DRUGS (11)
  1. IBUPROFEN [Suspect]
     Indication: OSTEOARTHRITIS
     Dosage: UNK
     Route: 048
     Dates: start: 20080417, end: 20080625
  2. NAPROXEN [Suspect]
     Indication: OSTEOARTHRITIS
     Dosage: UNK
     Route: 048
     Dates: start: 20080417, end: 20080625
  3. BLINDED *NO SUBJECT DRUG [Suspect]
     Indication: OSTEOARTHRITIS
     Dosage: UNK
     Route: 048
     Dates: start: 20080417, end: 20080625
  4. BLINDED *PLACEBO [Suspect]
     Indication: OSTEOARTHRITIS
     Dosage: UNK
     Route: 048
     Dates: start: 20080417, end: 20080625
  5. BLINDED CELECOXIB [Suspect]
     Indication: OSTEOARTHRITIS
     Dosage: UNK
     Route: 048
     Dates: start: 20080417, end: 20080625
  6. IBUPROFEN [Suspect]
     Dosage: UNK
     Route: 048
     Dates: start: 20080417, end: 20080625
  7. NAPROXEN [Suspect]
     Dosage: UNK
     Route: 048
     Dates: start: 20080417, end: 20080625
  8. METFORMIN [Concomitant]
     Dosage: UNK
     Route: 048
     Dates: start: 20070101
  9. METOPROLOL [Concomitant]
     Dosage: UNK
     Route: 048
     Dates: start: 20000101
  10. AZATHIOPRINE [Concomitant]
     Dosage: UNK
     Route: 048
     Dates: start: 19980101
  11. PRAZOSIN HYDROCHLORIDE [Concomitant]
     Dosage: UNK
     Route: 048
     Dates: start: 20080514

REACTIONS (1)
  - NEPHROTIC SYNDROME [None]
